FAERS Safety Report 7016248-6 (Version None)
Quarter: 2010Q3

REPORT INFORMATION
  Report Type: 
  Country: None (occurrence: None)
  Receive Date: 20100927
  Receipt Date: 20091218
  Transmission Date: 20110219
  Serious: No
  Sender: FDA-Public Use
  Company Number: US-ASTRAZENECA-2009SE32869

PATIENT
  Age: 60 Year
  Sex: Female
  Weight: 72.1 kg

DRUGS (5)
  1. ARIMIDEX [Suspect]
     Indication: BREAST CANCER
     Route: 048
     Dates: start: 20050501
  2. ACTONEL [Suspect]
     Indication: OSTEOPOROSIS
     Route: 065
  3. WELLBUTRIN [Concomitant]
     Route: 048
  4. SIMVASTATIN [Concomitant]
     Route: 048
  5. PREVACID [Concomitant]
     Route: 048

REACTIONS (4)
  - ARTHRALGIA [None]
  - CONSTIPATION [None]
  - FATIGUE [None]
  - MEMORY IMPAIRMENT [None]
